FAERS Safety Report 8947428 (Version 3)
Quarter: 2013Q1

REPORT INFORMATION
  Report Type: Spontaneous
  Country: US (occurrence: US)
  Receive Date: 20121205
  Receipt Date: 20130129
  Transmission Date: 20140127
  Serious: Yes (Hospitalization, Other)
  Sender: FDA-Public Use
  Company Number: US-JNJFOC-20121113553

PATIENT
  Age: 52 None
  Sex: Male
  Weight: 85.73 kg

DRUGS (8)
  1. REMICADE [Suspect]
     Indication: CROHN^S DISEASE
     Route: 042
     Dates: start: 20050523
  2. REMICADE [Suspect]
     Indication: CROHN^S DISEASE
     Route: 042
     Dates: start: 20110302, end: 20120910
  3. REMICADE [Suspect]
     Indication: CROHN^S DISEASE
     Route: 042
     Dates: start: 20100121
  4. MTX [Concomitant]
     Indication: CROHN^S DISEASE
     Route: 058
     Dates: start: 20091013, end: 20091217
  5. MTX [Concomitant]
     Indication: CROHN^S DISEASE
     Route: 058
     Dates: start: 20110401, end: 20110508
  6. VITAMIN B-12 [Concomitant]
     Route: 058
  7. ALL OTHER THERAPEUTICS [Concomitant]
     Indication: ELECTROLYTE SUBSTITUTION THERAPY
     Route: 065
  8. ITRACONAZOLE [Concomitant]
     Indication: ACUTE PULMONARY HISTOPLASMOSIS
     Route: 065
     Dates: start: 2009

REACTIONS (13)
  - Renal failure [Unknown]
  - Acute pulmonary histoplasmosis [Unknown]
  - Non-Hodgkin^s lymphoma [Recovering/Resolving]
  - Enterocolonic fistula [Unknown]
  - Small intestinal obstruction [Recovered/Resolved]
  - Abscess [Unknown]
  - Vitamin D deficiency [Unknown]
  - Hyponatraemia [Recovered/Resolved]
  - Anaemia [Recovered/Resolved]
  - Escherichia infection [Unknown]
  - Crohn^s disease [Recovered/Resolved]
  - Hyperglycaemia [Unknown]
  - Herpes zoster [Unknown]
